FAERS Safety Report 7974584-0 (Version None)
Quarter: 2011Q4

REPORT INFORMATION
  Report Type: 
  Country: None (occurrence: None)
  Receive Date: 20111213
  Receipt Date: 20111130
  Transmission Date: 20120403
  Serious: Yes (Hospitalization)
  Sender: FDA-Public Use
  Company Number: US-BAYER-2010-006224

PATIENT
  Age: 29 Year
  Sex: Female
  Weight: 104 kg

DRUGS (6)
  1. PRILOSEC [Concomitant]
     Dosage: 20 MG, BID
     Route: 048
     Dates: start: 20080801
  2. YAZ [Suspect]
     Indication: CONTRACEPTION
     Dosage: UNK
     Route: 048
     Dates: start: 20070501, end: 20090401
  3. ZANTAC [Concomitant]
     Dosage: 30 MG, UNK
     Route: 048
     Dates: start: 20080801
  4. IBUPROFEN (ADVIL) [Concomitant]
     Indication: PAIN
     Dosage: 800 MG, UNK
  5. YAZ [Suspect]
     Indication: PREMENSTRUAL SYNDROME
  6. YAZ [Suspect]

REACTIONS (7)
  - ANXIETY [None]
  - ABDOMINAL PAIN [None]
  - DEPRESSION [None]
  - FEAR [None]
  - EMOTIONAL DISTRESS [None]
  - CHOLECYSTITIS ACUTE [None]
  - CHOLELITHIASIS [None]
